FAERS Safety Report 19388075 (Version 7)
Quarter: 2022Q3

REPORT INFORMATION
  Report Type: Report from Study
  Country: DE (occurrence: None)
  Receive Date: 20210608
  Receipt Date: 20220818
  Transmission Date: 20221027
  Serious: Yes (Hospitalization)
  Sender: FDA-Public Use
  Company Number: DE-ROCHE-2786014

PATIENT
  Age: 70 Year
  Sex: Male
  Weight: 93 kg

DRUGS (18)
  1. ATEZOLIZUMAB [Suspect]
     Active Substance: ATEZOLIZUMAB
     Indication: Lung neoplasm malignant
     Dosage: ON 12/AUG/2020, HE RECEIVED MOST RECENT DOSE OF BLINDED ATEZOLIZUMAB PRIOR TO ONSET OF AE AND SERIOU
     Route: 041
     Dates: start: 20200610
  2. ATEZOLIZUMAB [Suspect]
     Active Substance: ATEZOLIZUMAB
     Indication: Lung neoplasm malignant
     Dosage: ON 17/FEB/2021 AND 12/MAY/2021, HE RECEIVED MOST RECENT DOSE OF ATEZOLIZUMAB (1200 MG) PRIOR TO ONSE
     Route: 041
     Dates: start: 20201015
  3. CARBOPLATIN [Suspect]
     Active Substance: CARBOPLATIN
     Indication: Lung neoplasm malignant
     Dosage: INITIAL TARGET AUC OF 6 MG/ML/MIN WILL BE ADMINISTERED ON DAY 1 OF EACH 21-DAY CYCLE FOR 4 CYCLES.?O
     Route: 042
     Dates: start: 20200610
  4. PEMETREXED [Suspect]
     Active Substance: PEMETREXED
     Indication: Lung neoplasm malignant
     Dosage: ON 12/AUG/2020, HE RECEIVED MOST RECENT DOSE OF PEMETREXED (1095 MG) PRIOR TO ONSET OF AE AND SERIOU
     Route: 042
     Dates: start: 20200610
  5. ASPIRIN [Concomitant]
     Active Substance: ASPIRIN
  6. VALSARTAN [Concomitant]
     Active Substance: VALSARTAN
     Indication: Hypertension
  7. AMLODIPINE BESYLATE [Concomitant]
     Active Substance: AMLODIPINE BESYLATE
     Indication: Hypertension
     Dates: end: 20210916
  8. NEBIVOLOL [Concomitant]
     Active Substance: NEBIVOLOL
     Indication: Hypertension
  9. TORSEMIDE [Concomitant]
     Active Substance: TORSEMIDE
     Indication: Hypertension
     Dates: end: 20210916
  10. ALLOPURINOL [Concomitant]
     Active Substance: ALLOPURINOL
     Indication: Hyperuricaemia
  11. FOLIC ACID [Concomitant]
     Active Substance: FOLIC ACID
     Dates: start: 20200427
  12. METAMIZOL [Concomitant]
     Active Substance: METAMIZOLE SODIUM
     Indication: Pain
     Dates: start: 20210305, end: 20210315
  13. OXYCODONE [Concomitant]
     Active Substance: OXYCODONE
     Dates: start: 20210621
  14. AMOXICILLIN [Concomitant]
     Active Substance: AMOXICILLIN
     Dates: start: 20210603, end: 20210702
  15. ENOXAPARIN [Concomitant]
     Active Substance: ENOXAPARIN
     Dates: start: 20210603, end: 20210730
  16. PANTOPRAZOLE SODIUM [Concomitant]
     Active Substance: PANTOPRAZOLE SODIUM
     Dates: start: 20200909, end: 20200916
  17. POLYETHYLENE GLYCOLS [Concomitant]
     Active Substance: POLYETHYLENE GLYCOLS
     Indication: Constipation
     Dates: start: 20210607
  18. COMIRNATY [Concomitant]
     Active Substance: TOZINAMERAN
     Dosage: VACCINATION
     Dates: start: 20210523, end: 20210523

REACTIONS (2)
  - Iliac artery occlusion [Recovered/Resolved]
  - Haematoma [Recovered/Resolved]

NARRATIVE: CASE EVENT DATE: 20210226
